FAERS Safety Report 6908378-1 (Version None)
Quarter: 2010Q3

REPORT INFORMATION
  Report Type: 
  Country: None (occurrence: None)
  Receive Date: 20100803
  Receipt Date: 20100719
  Transmission Date: 20110219
  Serious: Yes (Death)
  Sender: FDA-Public Use
  Company Number: KV200900810

PATIENT
  Age: 82 Year
  Sex: Female
  Weight: 63.9 kg

DRUGS (12)
  1. MORPHINE SULFATE [Suspect]
     Indication: PROCEDURAL PAIN
     Dosage: 15 MG, Q8HRS PRN, ORAL
     Route: 048
     Dates: start: 20080601, end: 20080721
  2. MORPHINE SULFATE [Concomitant]
  3. LABETALOL (LAVETALOL) [Concomitant]
  4. LEXAPRO [Concomitant]
  5. MEGACE [Concomitant]
  6. LASIX  /0032601/ (FUROSEMIDE) [Concomitant]
  7. MARINOL [Concomitant]
  8. PERCOCET /00446701/ (OXYCODONE HYDROCHLORIDE, OXYCODONE TEREPHITHALATE [Concomitant]
  9. LOVENOX [Concomitant]
  10. OXYGEN (OXYGEN) [Concomitant]
  11. CALCIUM  (CALCIUM) [Concomitant]
  12. MACROBID /00024401/ (NITROFURANTION) [Concomitant]

REACTIONS (18)
  - ABDOMINAL PAIN UPPER [None]
  - ANXIETY [None]
  - ASTHENIA [None]
  - COLON CANCER [None]
  - COUGH [None]
  - DECREASED APPETITE [None]
  - DISTURBANCE IN ATTENTION [None]
  - DIZZINESS [None]
  - DYSURIA [None]
  - GINGIVITIS [None]
  - LETHARGY [None]
  - MENTAL STATUS CHANGES [None]
  - METASTASIS [None]
  - MUSCLE SPASMS [None]
  - PAIN IN EXTREMITY [None]
  - POLLAKIURIA [None]
  - SARCOMA UTERUS [None]
  - TONGUE COATED [None]
